FAERS Safety Report 5918315-4 (Version None)
Quarter: 2008Q4

REPORT INFORMATION
  Report Type: 
  Country: None (occurrence: None)
  Receive Date: 20081010
  Receipt Date: 20080925
  Transmission Date: 20090506
  Serious: Yes (Hospitalization)
  Sender: FDA-Public Use
  Company Number: 16140

PATIENT
  Age: 58 Year
  Sex: Female

DRUGS (4)
  1. MORPHINE SULFATE [Suspect]
     Indication: PAIN
     Dosage: 1 TABLET TID ORAL
     Route: 048
  2. MORPHINE SULFATE [Suspect]
     Indication: PAIN
     Dosage: 1 TABLET TID ORAL
     Route: 048
  3. SEROQUEL [Concomitant]
  4. OXYCONTIN (EXTENDED-RELEASE OXYCODONE HC1) [Concomitant]

REACTIONS (3)
  - LOSS OF CONSCIOUSNESS [None]
  - OVERDOSE [None]
  - REFUSAL OF TREATMENT BY PATIENT [None]
